FAERS Safety Report 7269610-0 (Version None)
Quarter: 2011Q1

REPORT INFORMATION
  Report Type: 
  Country: None (occurrence: None)
  Receive Date: 20110202
  Receipt Date: 20110125
  Transmission Date: 20110831
  Serious: Yes (Hospitalization)
  Sender: FDA-Public Use
  Company Number: US-JNJFOC-20110107638

PATIENT
  Age: 65 Year
  Sex: Female
  Weight: 48.31 kg

DRUGS (24)
  1. EFFEXOR XR [Suspect]
     Indication: HOT FLUSH
     Route: 048
  2. METHOCARBAMOL [Suspect]
     Indication: MUSCLE RELAXANT THERAPY
     Dosage: AS NEEDED
     Route: 048
  3. CYMBALTA [Suspect]
     Indication: ANXIETY
     Route: 048
  4. PREDNISONE [Concomitant]
     Indication: RHEUMATOID ARTHRITIS
     Route: 065
  5. LYRICA [Suspect]
     Indication: RESTLESS LEGS SYNDROME
     Route: 048
  6. BENZTROPINE MESYLATE [Suspect]
     Indication: AKATHISIA
     Route: 048
  7. SOMA [Suspect]
     Indication: ANXIETY
     Route: 048
  8. PROMETHAZINE [Concomitant]
     Indication: NAUSEA
     Route: 065
  9. FERROUS SULFATE TAB [Concomitant]
     Indication: ILL-DEFINED DISORDER
     Route: 065
  10. METHOTREXATE [Suspect]
     Indication: RHEUMATOID ARTHRITIS
     Route: 065
  11. SEROQUEL [Suspect]
     Indication: ANXIETY
     Route: 048
  12. LYRICA [Suspect]
     Route: 048
  13. LORTAB [Suspect]
     Indication: RHEUMATOID ARTHRITIS
     Dosage: 7.5/500 MG
     Route: 048
  14. FOLIC ACID [Concomitant]
     Indication: MEDICAL DIET
     Route: 065
  15. RISPERDAL [Suspect]
     Indication: ILL-DEFINED DISORDER
     Route: 065
  16. CYMBALTA [Suspect]
     Route: 048
  17. ALBUTEROL [Concomitant]
     Indication: RHINITIS SEASONAL
     Route: 065
  18. LYRICA [Suspect]
     Indication: RHEUMATOID ARTHRITIS
     Route: 048
  19. LYRICA [Suspect]
     Route: 048
  20. MECLIZINE [Suspect]
     Indication: AKATHISIA
     Route: 048
  21. LAMOTRIGINE [Suspect]
     Indication: HALLUCINATION
     Route: 048
  22. LORAZEPAM [Suspect]
     Indication: ANXIETY
     Route: 048
  23. OMEPRAZOLE [Concomitant]
     Indication: GASTROOESOPHAGEAL REFLUX DISEASE
     Route: 065
  24. LORAZEPAM [Suspect]
     Route: 048

REACTIONS (1)
  - PSYCHOTIC DISORDER [None]
